FAERS Safety Report 5907077-2 (Version None)
Quarter: 2008Q4

REPORT INFORMATION
  Report Type: 
  Country: None (occurrence: None)
  Receive Date: 20081002
  Receipt Date: 20081002
  Transmission Date: 20090506
  Serious: No
  Sender: FDA-Public Use
  Company Number: None

PATIENT
  Sex: Female
  Weight: 44.45 kg

DRUGS (4)
  1. FLUOROURACIL [Suspect]
     Dosage: 4088 MG
  2. ERBITUX [Suspect]
     Dosage: 730 MG
  3. LEUCOVORIN CALCIUM [Suspect]
     Dosage: 584 MG
  4. ELOXATIN [Suspect]
     Dosage: 124 MG

REACTIONS (1)
  - NEUTROPHIL COUNT DECREASED [None]
